FAERS Safety Report 17338894 (Version 5)
Quarter: 2020Q2

REPORT INFORMATION
  Report Type: Spontaneous
  Country: US (occurrence: US)
  Receive Date: 20200129
  Receipt Date: 20200420
  Transmission Date: 20200713
  Serious: Yes (Hospitalization)
  Sender: FDA-Public Use
  Company Number: US-ACORDA-ACO_163484_2020

PATIENT
  Age: 67 Year
  Sex: Female

DRUGS (3)
  1. AVONEX [Suspect]
     Active Substance: INTERFERON BETA-1A
     Indication: MULTIPLE SCLEROSIS
     Dosage: UNK
     Route: 065
     Dates: start: 20010813
  2. AMPYRA [Suspect]
     Active Substance: DALFAMPRIDINE
     Indication: GAIT DISTURBANCE
     Dosage: 10 MILLIGRAM, BID
     Route: 048
  3. DALFAMPRIDINE. [Suspect]
     Active Substance: DALFAMPRIDINE
     Indication: GAIT DISTURBANCE
     Dosage: 10 MILLIGRAM
     Route: 048
     Dates: start: 20191007

REACTIONS (9)
  - Tooth infection [Recovered/Resolved]
  - Fall [Recovered/Resolved]
  - Fall [Recovered/Resolved]
  - Influenza [Recovered/Resolved]
  - Skin laceration [Recovered/Resolved]
  - Head injury [Unknown]
  - Fall [Recovered/Resolved]
  - Multiple sclerosis relapse [Unknown]
  - Toothache [Recovered/Resolved]

NARRATIVE: CASE EVENT DATE: 20170121
